FAERS Safety Report 4518185-5 (Version None)
Quarter: 2004Q4

REPORT INFORMATION
  Report Type: 
  Country: None (occurrence: None)
  Receive Date: 20041130
  Receipt Date: 20041118
  Transmission Date: 20050328
  Serious: Yes (Life-Threatening, Hospitalization)
  Sender: FDA-Public Use
  Company Number: HQWYE512918NOV04

PATIENT
  Sex: Female

DRUGS (1)
  1. LODINE [Suspect]

REACTIONS (1)
  - HOSPITALISATION [None]
